FAERS Safety Report 6239092-6 (Version None)
Quarter: 2009Q2

REPORT INFORMATION
  Report Type: 
  Country: None (occurrence: None)
  Receive Date: 20090622
  Receipt Date: 20090618
  Transmission Date: 20091009
  Serious: Yes (Death, Hospitalization)
  Sender: FDA-Public Use
  Company Number: PHHY2009BR24540

PATIENT
  Sex: Female

DRUGS (4)
  1. EXELON [Suspect]
     Indication: DEMENTIA ALZHEIMER'S TYPE
     Dosage: TWICE PER DAY
     Route: 048
  2. EXELON [Suspect]
     Indication: DEMENTIA ALZHEIMER'S TYPE
     Dosage: 1 DF, QD
     Route: 062
  3. STALEVO 100 [Suspect]
     Dosage: 37.5/200/100 MG, 1 TABLET IN MORNING AND 1 TABLET IN NIGHT
     Route: 048
  4. STALEVO 100 [Suspect]
     Dosage: 37.5/200/150 MG, 1 TABLET IN MORNING AND 1 TABLET IN NIGHT
     Route: 048

REACTIONS (7)
  - CARDIAC FAILURE [None]
  - FEELING ABNORMAL [None]
  - HAEMOTHORAX [None]
  - MULTI-ORGAN FAILURE [None]
  - RESPIRATORY ARREST [None]
  - SEPTIC SHOCK [None]
  - SYNCOPE [None]
